FAERS Safety Report 9523060 (Version 2)
Quarter: 2014Q1

REPORT INFORMATION
  Report Type: Spontaneous
  Country: DK (occurrence: CA)
  Receive Date: 20130913
  Receipt Date: 20140123
  Transmission Date: 20141002
  Serious: Yes (Death)
  Sender: FDA-Public Use
  Company Number: CA-FRI-1000048780

PATIENT
  Age: 20 Year
  Sex: Male

DRUGS (2)
  1. ESCITALOPRAM [Suspect]
     Indication: DEPRESSION
     Dosage: 20 MG
     Route: 048
     Dates: start: 2012, end: 2012
  2. ESCITALOPRAM [Suspect]
     Dosage: OVERDOSE: ESCITALOPRAM 40 MG DAILY.
     Route: 048
     Dates: start: 2012, end: 2012

REACTIONS (4)
  - Completed suicide [Fatal]
  - Anxiety [Fatal]
  - Irritability [Fatal]
  - Prescribed overdose [Fatal]
